FAERS Safety Report 6059443-5 (Version None)
Quarter: 2009Q1

REPORT INFORMATION
  Report Type: 
  Country: None (occurrence: None)
  Receive Date: 20090130
  Receipt Date: 20090121
  Transmission Date: 20090719
  Serious: Yes (Other)
  Sender: FDA-Public Use
  Company Number: PHEH2007US12077

PATIENT
  Sex: Female
  Weight: 74.83 kg

DRUGS (20)
  1. ZOMETA [Suspect]
     Indication: NEOPLASM MALIGNANT
     Dosage: 4 MG, QMO
     Dates: start: 20020101, end: 20060101
  2. ZOMETA [Suspect]
     Indication: METASTASES TO SPINE
  3. CHLORHEXIDINE GLUCONATE [Concomitant]
  4. AROMASIN [Concomitant]
     Indication: LUNG NEOPLASM
     Dosage: 25 MG, QD
     Dates: start: 20000101
  5. LASIX [Concomitant]
  6. CARTIA                                  /USA/ [Concomitant]
  7. SPIRONOLACTONE [Concomitant]
  8. KLOR-CON [Concomitant]
     Dosage: 10 MEQ, QD
  9. AMBIEN [Concomitant]
     Dosage: 10 MG, PRN
  10. DARVOCET-N 100 [Concomitant]
     Dosage: UNK
  11. TAMOXIFEN CITRATE [Concomitant]
  12. COZAAR [Concomitant]
     Dosage: 100 MG, QD
  13. LORTAB [Concomitant]
     Dosage: UNK
  14. ADVAIR DISKUS 100/50 [Concomitant]
     Dosage: UNK
  15. XANAX [Concomitant]
     Dosage: 0.5 MG, PRN
  16. CALTRATE +D [Concomitant]
     Dosage: UNK
  17. HYDROCHLOROTHIAZIDE [Concomitant]
     Dosage: 25 MG, QD
  18. CELEXA [Concomitant]
     Dosage: 40 MG, QD
  19. CRESTOR [Concomitant]
     Dosage: 110 MG, QD
  20. PROTEINASE INHIBITORS [Concomitant]
     Dosage: UNK

REACTIONS (34)
  - ABASIA [None]
  - ANHEDONIA [None]
  - ANXIETY [None]
  - ASTHENIA [None]
  - BIOPSY [None]
  - BLOOD CALCIUM INCREASED [None]
  - BRAIN OPERATION [None]
  - CENTRAL NERVOUS SYSTEM LESION [None]
  - CHRONIC OBSTRUCTIVE PULMONARY DISEASE [None]
  - CRANIOTOMY [None]
  - DEFORMITY [None]
  - DEPRESSION [None]
  - DISCOMFORT [None]
  - EMOTIONAL DISTRESS [None]
  - GASTROOESOPHAGEAL REFLUX DISEASE [None]
  - GLUCOSE TOLERANCE IMPAIRED [None]
  - HYPERKERATOSIS [None]
  - HYPERTENSION [None]
  - HYPERTROPHIC CARDIOMYOPATHY [None]
  - IMPLANTABLE DEFIBRILLATOR INSERTION [None]
  - INJURY [None]
  - MUSCULOSKELETAL PAIN [None]
  - MYOPATHY [None]
  - OSTEOARTHRITIS [None]
  - OSTEONECROSIS [None]
  - PAIN [None]
  - RESTLESS LEGS SYNDROME [None]
  - SHOULDER ARTHROPLASTY [None]
  - THYROIDECTOMY [None]
  - TOOTH EXTRACTION [None]
  - TOOTH FRACTURE [None]
  - TOOTH LOSS [None]
  - TOOTH REPAIR [None]
  - VENTRICULAR SEPTAL DEFECT REPAIR [None]
